FAERS Safety Report 26072228 (Version 1)
Quarter: 2025Q4

REPORT INFORMATION
  Report Type: Spontaneous
  Country: US (occurrence: US)
  Receive Date: 20251120
  Receipt Date: 20251120
  Transmission Date: 20260117
  Serious: Yes (Death)
  Sender: VERTEX
  Company Number: US-VERTEX PHARMACEUTICALS-2025-019219

PATIENT
  Age: 85 Year
  Sex: Male

DRUGS (2)
  1. JOURNAVX [Suspect]
     Active Substance: SUZETRIGINE
     Indication: Lung carcinoma cell type unspecified stage IV
     Dosage: UNK
     Route: 048
     Dates: start: 20251031, end: 20251031
  2. JOURNAVX [Suspect]
     Active Substance: SUZETRIGINE
     Indication: Pleural effusion

REACTIONS (3)
  - Haemorrhage [Fatal]
  - Hallucination [Recovered/Resolved]
  - Off label use [Unknown]

NARRATIVE: CASE EVENT DATE: 20251031
